FAERS Safety Report 4650154-7 (Version None)
Quarter: 2005Q2

REPORT INFORMATION
  Report Type: 
  Country: None (occurrence: None)
  Receive Date: 20050502
  Receipt Date: 20050425
  Transmission Date: 20051028
  Serious: Yes (Disabling)
  Sender: FDA-Public Use
  Company Number: PHFR2005GB01642

PATIENT
  Age: 66 Year
  Sex: Male

DRUGS (2)
  1. INTERFERON [Concomitant]
     Indication: CHRONIC MYELOID LEUKAEMIA
     Dates: start: 20040101
  2. GLEEVEC [Suspect]
     Indication: CHRONIC MYELOID LEUKAEMIA
     Dosage: 200-300MG/DAY
     Route: 048
     Dates: start: 20030101, end: 20040701

REACTIONS (3)
  - HAEMOGLOBIN DECREASED [None]
  - NEUTROPHIL COUNT DECREASED [None]
  - SIDEROBLASTIC ANAEMIA [None]
